FAERS Safety Report 7293300-1 (Version None)
Quarter: 2011Q1

REPORT INFORMATION
  Report Type: 
  Country: None (occurrence: None)
  Receive Date: 20110215
  Receipt Date: 20110210
  Transmission Date: 20110831
  Serious: Yes (Life-Threatening, Hospitalization, Other)
  Sender: FDA-Public Use
  Company Number: US-ASTRAZENECA-2011SE08333

PATIENT
  Age: 70 Year
  Sex: Female

DRUGS (1)
  1. NEXIUM [Suspect]
     Route: 048

REACTIONS (11)
  - OROPHARYNGEAL PAIN [None]
  - OESOPHAGEAL SPASM [None]
  - APPARENT DEATH [None]
  - ORAL DISCHARGE [None]
  - LUNG DISORDER [None]
  - LUNG OPERATION [None]
  - DYSKINESIA OESOPHAGEAL [None]
  - GASTRIC PH DECREASED [None]
  - RETCHING [None]
  - GASTROOESOPHAGEAL REFLUX DISEASE [None]
  - FEELING ABNORMAL [None]
